FAERS Safety Report 5729876-2 (Version None)
Quarter: 2008Q2

REPORT INFORMATION
  Report Type: 
  Country: None (occurrence: None)
  Receive Date: 20080502
  Receipt Date: 20080418
  Transmission Date: 20081010
  Serious: Yes (Death, Hospitalization, Other)
  Sender: FDA-Public Use
  Company Number: 2008S1006973

PATIENT
  Age: 65 Year
  Sex: Male

DRUGS (4)
  1. AZATHIOPRINE [Suspect]
     Indication: LUNG TRANSPLANT
     Dosage: 200 MG; DAILY;
  2. TACROLIMUS [Suspect]
     Indication: LUNG TRANSPLANT
     Dosage: 4 MG; TWICE A DAY;, 0.5 MG; DAILY;
     Dates: end: 20050701
  3. TACROLIMUS [Suspect]
     Indication: LUNG TRANSPLANT
     Dosage: 4 MG; TWICE A DAY;, 0.5 MG; DAILY;
     Dates: start: 20050701
  4. PREDNISONE TAB [Suspect]
     Indication: LUNG TRANSPLANT
     Dosage: 10 MG; DAILY;

REACTIONS (16)
  - B-CELL LYMPHOMA [None]
  - BLOOD AMYLASE ABNORMAL [None]
  - CARDIAC DISORDER [None]
  - CATHETER RELATED COMPLICATION [None]
  - FATIGUE [None]
  - HEPATIC NEOPLASM [None]
  - HYPERKALAEMIA [None]
  - LEFT VENTRICULAR DYSFUNCTION [None]
  - LETHARGY [None]
  - LIPASE ABNORMAL [None]
  - LYMPHOPROLIFERATIVE DISORDER [None]
  - RENAL FAILURE ACUTE [None]
  - TUMOUR LYSIS SYNDROME [None]
  - URATE NEPHROPATHY [None]
  - URINE ANALYSIS ABNORMAL [None]
  - VENOUS THROMBOSIS [None]
